FAERS Safety Report 24071732 (Version 1)
Quarter: 2024Q3

REPORT INFORMATION
  Report Type: Spontaneous
  Country: AT (occurrence: AT)
  Receive Date: 20240710
  Receipt Date: 20240710
  Transmission Date: 20241017
  Serious: No
  Sender: ROCHE
  Company Number: AT-ROCHE-3558889

PATIENT
  Age: 59 Year
  Sex: Male
  Weight: 64.0 kg

DRUGS (1)
  1. EVRYSDI [Suspect]
     Active Substance: RISDIPLAM
     Indication: Spinal muscular atrophy
     Route: 065

REACTIONS (4)
  - Pancreatic disorder [Unknown]
  - Blood testosterone normal [Unknown]
  - Therapeutic response unexpected [Unknown]
  - Pre-existing condition improved [Unknown]
